FAERS Safety Report 11207957 (Version 2)
Quarter: 2015Q3

REPORT INFORMATION
  Report Type: Spontaneous
  Country: US (occurrence: None)
  Receive Date: 20150619
  Receipt Date: 20150727
  Transmission Date: 20151125
  Serious: Yes (Hospitalization)
  Sender: FDA-Public Use
  Company Number: 1224850-2015-00043

PATIENT
  Age: 71 Year
  Sex: Female
  Weight: 68 kg

DRUGS (10)
  1. ACETAMINOPHEN. [Concomitant]
     Active Substance: ACETAMINOPHEN
  2. CHOLECALCIFEROL [Concomitant]
     Active Substance: CHOLECALCIFEROL
  3. NEPHROCAPS [Concomitant]
     Active Substance: ASCORBIC ACID\BIOTIN\CYANOCOBALAMIN\FOLIC ACID\NIACIN\PANTOTHENIC ACID\PYRIDOXINE\RIBOFLAVIN\THIAMINE
  4. MECLIZINE [Concomitant]
     Active Substance: MECLIZINE\MECLIZINE HYDROCHLORIDE
  5. FRESENIUS 2008K2 HEMODIALYSIS SYSTEM [Concomitant]
  6. GAMBRO POLYFLUX 17R [Concomitant]
  7. LEVEMIR [Concomitant]
     Active Substance: INSULIN DETEMIR
  8. NOVOLOG [Concomitant]
     Active Substance: INSULIN ASPART
  9. FRESENIUS CUSTOM COMBI SET [Concomitant]
  10. PHOSLO [Suspect]
     Active Substance: CALCIUM ACETATE
     Indication: CHRONIC KIDNEY DISEASE
     Route: 048
     Dates: start: 20150410

REACTIONS (4)
  - Blood pressure increased [None]
  - Syncope [None]
  - Unresponsive to stimuli [None]
  - Haemodialysis-induced symptom [None]

NARRATIVE: CASE EVENT DATE: 20150410
